FAERS Safety Report 11392492 (Version 10)
Quarter: 2017Q2

REPORT INFORMATION
  Report Type: Report from Study
  Country: FR (occurrence: FR)
  Receive Date: 20150818
  Receipt Date: 20170424
  Transmission Date: 20170829
  Serious: Yes (Life-Threatening, Disabling, Other)
  Sender: FDA-Public Use
  Company Number: PHHY2015FR098809

PATIENT
  Age: 63 Year
  Sex: Male

DRUGS (9)
  1. PRAVASTATIN. [Concomitant]
     Active Substance: PRAVASTATIN
     Indication: ARTERIOSCLEROSIS
     Dosage: 20 MG, QD
     Route: 065
     Dates: start: 20110301, end: 20150806
  2. TANGANIL//ACETYLLEUCINE [Concomitant]
     Indication: PRODUCT USED FOR UNKNOWN INDICATION
     Dosage: UNK
     Route: 065
  3. COVERSYL//PERINDOPRIL ERBUMINE [Concomitant]
     Active Substance: PERINDOPRIL
     Indication: CARDIOVASCULAR DISORDER
     Dosage: 2.5 MG, QD
     Route: 065
     Dates: start: 20110301
  4. SPRYCEL [Concomitant]
     Active Substance: DASATINIB
     Indication: CHRONIC MYELOID LEUKAEMIA
     Dosage: 50 MG, QD
     Route: 065
     Dates: start: 20150807
  5. FLUDEX [Concomitant]
     Active Substance: INDAPAMIDE
     Indication: HYPERTENSION
     Dosage: 1.5 MG, QD
     Route: 065
     Dates: start: 2011
  6. ATORVASTATINE//ATORVASTATIN [Concomitant]
     Indication: DYSLIPIDAEMIA
     Dosage: 80 MG, QD
     Route: 065
     Dates: start: 201507
  7. KARDEGIC [Concomitant]
     Active Substance: ASPIRIN LYSINE
     Indication: ARTERIOSCLEROSIS
     Dosage: 75 MG, QD
     Route: 065
     Dates: start: 20110301
  8. OXYCODONE [Concomitant]
     Active Substance: OXYCODONE
     Indication: PAIN
     Dosage: 20 MG, QD
     Route: 065
     Dates: start: 20160113
  9. TASIGNA [Suspect]
     Active Substance: NILOTINIB
     Indication: CHRONIC MYELOID LEUKAEMIA
     Dosage: 300 MG, BID
     Route: 048
     Dates: start: 20101202, end: 20150806

REACTIONS (21)
  - Hemianopia [Unknown]
  - Fall [Unknown]
  - Hemiparesis [Unknown]
  - Paralysis [Unknown]
  - Cerebral artery stenosis [Unknown]
  - Neutropenia [Unknown]
  - Leukopenia [Unknown]
  - Arteriosclerosis [Unknown]
  - Ischaemic stroke [Recovered/Resolved with Sequelae]
  - Motor dysfunction [Unknown]
  - Facial paralysis [Unknown]
  - Speech disorder [Unknown]
  - Gait disturbance [Unknown]
  - Epilepsy [Unknown]
  - Arteritis [Unknown]
  - Aphasia [Not Recovered/Not Resolved]
  - Carotid artery stenosis [Unknown]
  - Haematuria [Unknown]
  - Hypokinesia [Unknown]
  - Sensory loss [Unknown]
  - Cerebral ischaemia [Recovered/Resolved with Sequelae]

NARRATIVE: CASE EVENT DATE: 20110301
